FAERS Safety Report 21816754 (Version 3)
Quarter: 2023Q1

REPORT INFORMATION
  Report Type: Spontaneous
  Country: US (occurrence: US)
  Receive Date: 20230104
  Receipt Date: 20230118
  Transmission Date: 20230417
  Serious: Yes (Other)
  Sender: FDA-Public Use
  Company Number: US-BEH-2023153756

PATIENT
  Age: 58 Year
  Sex: Female
  Weight: 38.549 kg

DRUGS (3)
  1. HIZENTRA [Suspect]
     Active Substance: HUMAN IMMUNOGLOBULIN G
     Indication: Immunodeficiency common variable
     Dosage: 8 GRAM, QW
     Route: 058
     Dates: start: 20210730
  2. HIZENTRA [Suspect]
     Active Substance: HUMAN IMMUNOGLOBULIN G
     Indication: Humoral immune defect
     Dosage: UNK
     Route: 065
     Dates: start: 2019
  3. HIZENTRA [Suspect]
     Active Substance: HUMAN IMMUNOGLOBULIN G
     Dosage: 8 GRAM, QW
     Route: 058

REACTIONS (16)
  - COVID-19 [Unknown]
  - Rhinorrhoea [Unknown]
  - Dyspnoea [Unknown]
  - Swelling [Unknown]
  - Decreased appetite [Unknown]
  - Weight fluctuation [Unknown]
  - Cough [Unknown]
  - Infusion site swelling [Recovered/Resolved]
  - Fall [Recovered/Resolved]
  - Infection [Recovered/Resolved]
  - COVID-19 [Recovered/Resolved]
  - Arthralgia [Recovered/Resolved]
  - Infusion site swelling [Recovered/Resolved]
  - Dermatitis contact [Recovered/Resolved]
  - Application site erythema [Recovered/Resolved]
  - Application site pruritus [Recovered/Resolved]

NARRATIVE: CASE EVENT DATE: 20220901
